FAERS Safety Report 7394089-8 (Version None)
Quarter: 2011Q2

REPORT INFORMATION
  Report Type: 
  Country: None (occurrence: None)
  Receive Date: 20110405
  Receipt Date: 20110330
  Transmission Date: 20111010
  Serious: Yes (Death, Hospitalization)
  Sender: FDA-Public Use
  Company Number: US-BRISTOL-MYERS SQUIBB COMPANY-15176274

PATIENT
  Age: 74 Year
  Sex: Male
  Weight: 78 kg

DRUGS (23)
  1. DILAUDID [Concomitant]
     Dosage: 2 MG 1-3TAB Q4H PRN
  2. POLYETHYLENE GLYCOL [Concomitant]
     Dosage: POLYETHYLENE GLYCOL 3350 POWDER ; ALSO 17GM; LAST TAKEN=22/JUN2010
     Route: 048
  3. METOCLOPRAMIDE [Concomitant]
     Indication: NAUSEA
     Dosage: LAST DOSE= 29/JUN/2010
     Route: 048
  4. BACTRIM [Concomitant]
     Dosage: 2.1% ORAL SOLN
     Route: 048
  5. KEPPRA [Concomitant]
     Indication: CONVULSION
     Dosage: IVPB IN D5W 100ML
  6. REGLAN [Concomitant]
  7. DECADRON [Concomitant]
     Dosage: INJ 10MG/ML
     Route: 042
  8. DILANTIN [Concomitant]
  9. GLUCOSE + NACL [Concomitant]
     Dosage: VIA PERIPHERAL LINE
  10. REGLAN [Concomitant]
     Indication: NAUSEA
     Dosage: IVPB IND5W 50ML INJ
  11. ZOFRAN [Concomitant]
     Indication: NAUSEA
     Dosage: IVPB IN D5W 50ML, Q8H
     Dates: start: 20100629
  12. HEPARIN SODIUM [Concomitant]
     Indication: DEEP VEIN THROMBOSIS
     Route: 058
  13. HYDROMORPHONE HCL [Concomitant]
     Indication: PAIN
     Dosage: ALSO 4MG AND 6MG
     Route: 048
  14. PANTOPRAZOLE [Concomitant]
     Indication: PROPHYLAXIS
     Dosage: LAST DOSE= 03JUL2010
     Route: 048
     Dates: start: 20100629
  15. SULFAMETHOXAZOLE AND TRIMETHOPRIM [Concomitant]
     Dosage: 1DF= 1 TAB; LAST TAKEN=29/JUN/2010
     Route: 048
  16. DOCUSATE SODIUM [Concomitant]
     Indication: CONSTIPATION
     Route: 048
     Dates: start: 20100629
  17. PHENYTOIN SODIUM [Concomitant]
     Dosage: LAST TAKEN=28/JUN2010; CAPS
     Route: 048
  18. IPILIMUMAB [Suspect]
     Indication: MALIGNANT MELANOMA
     Dosage: FREQ=Q 21 DAYS X 4DOSES,LAST TREATMENT 23-JUN-2010 START:21MAY10.COURSES=2; LAST TREATMENT-9JUN2010
     Route: 042
     Dates: start: 20100521, end: 20100609
  19. NEXIUM [Concomitant]
     Route: 048
     Dates: start: 20100629
  20. OXYCODONE HCL [Concomitant]
     Indication: NAUSEA
     Route: 048
     Dates: start: 20100629
  21. OXYCODONE HCL [Concomitant]
     Indication: PAIN
     Route: 048
     Dates: start: 20100629
  22. HYDROMORPHONE HCL [Concomitant]
     Indication: PAIN
     Dosage: 1DF= 1 TO 2 TABS
     Route: 048
     Dates: start: 20100629
  23. QUESTRAN [Concomitant]
     Route: 048

REACTIONS (4)
  - NEOPLASM MALIGNANT [None]
  - DEHYDRATION [None]
  - NAUSEA [None]
  - VOMITING [None]
